FAERS Safety Report 11632761 (Version 1)
Quarter: 2015Q4

REPORT INFORMATION
  Report Type: Spontaneous
  Country: US (occurrence: None)
  Receive Date: 20151014
  Receipt Date: 20151014
  Transmission Date: 20160304
  Serious: Yes (Other)
  Sender: FDA-Public Use
  Company Number: None

PATIENT
  Age: 65 Year
  Sex: Female
  Weight: 67.7 kg

DRUGS (1)
  1. EPIRUBICIN [Suspect]
     Active Substance: EPIRUBICIN
     Indication: BREAST CANCER
     Dosage: Q21 DAYS
     Route: 042
     Dates: start: 20150618

REACTIONS (6)
  - Skin discolouration [None]
  - Respiratory rate increased [None]
  - Dyspnoea [None]
  - Tachypnoea [None]
  - Wheezing [None]
  - Blood pressure systolic increased [None]

NARRATIVE: CASE EVENT DATE: 20150730
